FAERS Safety Report 4330191-2 (Version None)
Quarter: 2004Q1

REPORT INFORMATION
  Report Type: 
  Country: None (occurrence: None)
  Receive Date: 20040329
  Receipt Date: 20040317
  Transmission Date: 20041129
  Serious: Yes (Hospitalization)
  Sender: FDA-Public Use
  Company Number: 04P-028-0254052-00

PATIENT
  Sex: Male
  Weight: 69.9 kg

DRUGS (4)
  1. KALETRA [Suspect]
     Indication: HIV INFECTION
     Dosage: 8 CAPSULE, 1 IN 1 D, PER ORAL
     Route: 048
     Dates: start: 20030606
  2. NEVIRAPINE [Concomitant]
  3. PAROXETINE HCL [Concomitant]
  4. LEUCOVORIN CALCIUM [Concomitant]

REACTIONS (2)
  - DELUSION [None]
  - SUICIDAL IDEATION [None]
